FAERS Safety Report 4440440-8 (Version None)
Quarter: 2004Q3

REPORT INFORMATION
  Report Type: 
  Country: None (occurrence: None)
  Receive Date: 20040728
  Receipt Date: 20040315
  Transmission Date: 20050211
  Serious: No
  Sender: FDA-Public Use
  Company Number: USA040362147

PATIENT
  Age: 12 Year
  Weight: 39 kg

DRUGS (1)
  1. STRATTERA [Suspect]
     Dosage: 60 MG
     Dates: start: 20040305

REACTIONS (7)
  - DECREASED APPETITE [None]
  - DRY MOUTH [None]
  - FATIGUE [None]
  - MOOD SWINGS [None]
  - PRESCRIBED OVERDOSE [None]
  - SOCIAL AVOIDANT BEHAVIOUR [None]
  - TINNITUS [None]
